FAERS Safety Report 4570984-X (Version None)
Quarter: 2005Q1

REPORT INFORMATION
  Report Type: 
  Country: None (occurrence: None)
  Receive Date: 20050204
  Receipt Date: 20050128
  Transmission Date: 20050727
  Serious: Yes (Hospitalization, Disabling)
  Sender: FDA-Public Use
  Company Number: US-MERCK-0501USA04368

PATIENT
  Age: 82 Year
  Sex: Female

DRUGS (3)
  1. VIOXX [Suspect]
     Indication: ARTHRITIS
     Route: 048
     Dates: start: 20010101, end: 20040930
  2. [THERAPY UNSPECIFIED] [Concomitant]
     Indication: OSTEOPOROSIS
     Route: 065
  3. [THERAPY UNSPECIFIED] [Concomitant]
     Indication: DEMENTIA
     Route: 065

REACTIONS (1)
  - CEREBROVASCULAR ACCIDENT [None]
